FAERS Safety Report 5393988-6 (Version None)
Quarter: 2007Q3

REPORT INFORMATION
  Report Type: 
  Country: None (occurrence: None)
  Receive Date: 20070723
  Receipt Date: 20070103
  Transmission Date: 20080115
  Serious: Yes (Other)
  Sender: FDA-Public Use
  Company Number: A0631957A

PATIENT
  Age: 75 Year
  Sex: Male
  Weight: 90.5 kg

DRUGS (2)
  1. AVANDIA [Suspect]
     Dosage: 4MG PER DAY
     Route: 048
     Dates: start: 20050601
  2. METFORMIN HCL [Concomitant]
     Dosage: 500MG PER DAY

REACTIONS (1)
  - ANAEMIA [None]
